FAERS Safety Report 8432426-3 (Version None)
Quarter: 2012Q2

REPORT INFORMATION
  Report Type: 
  Country: None (occurrence: None)
  Receive Date: 20120607
  Receipt Date: 20120607
  Transmission Date: 20120825
  Serious: Yes (Other)
  Sender: FDA-Public Use
  Company Number: FK201201476

PATIENT
  Age: 62 Year
  Sex: Female

DRUGS (2)
  1. CARBOPLATIN [Suspect]
     Indication: OVARIAN EPITHELIAL CANCER
  2. PACLITAXEL [Suspect]
     Indication: OVARIAN EPITHELIAL CANCER
     Dosage: 175 MG/M2

REACTIONS (13)
  - DEPRESSED MOOD [None]
  - SUICIDAL IDEATION [None]
  - THINKING ABNORMAL [None]
  - DISTURBANCE IN ATTENTION [None]
  - DECREASED INTEREST [None]
  - SOMNOLENCE [None]
  - DECREASED APPETITE [None]
  - VOMITING [None]
  - PSYCHOMOTOR RETARDATION [None]
  - FLUSHING [None]
  - FATIGUE [None]
  - NAUSEA [None]
  - DEPRESSION SUICIDAL [None]
